FAERS Safety Report 8750083 (Version 2)
Quarter: 2012Q4

REPORT INFORMATION
  Report Type: 
  Country: None (occurrence: None)
  Receive Date: 20120809
  Receipt Date: 20120823
  Transmission Date: 20130627
  Serious: Yes (Death, Hospitalization)
  Sender: FDA-Public Use
  Company Number: AUR-APL-2012-03419

PATIENT
  Age: 51 Year
  Sex: Male

DRUGS (7)
  1. MELOXICAM [Suspect]
     Indication: DRUG USE FOR UNKNOWN INDICATION
  2. RISPERIDONE [Suspect]
     Indication: DRUG USE FOR UNKNOWN INDICATION
  3. CITALOPRAM HYDROBROMIDE [Suspect]
     Indication: DRUG USE FOR UNKNOWN INDICATION
  4. BROMAZEPAM [Suspect]
     Indication: DRUG USE FOR UNKNOWN INDICATION
  5. IBUPROFEN [Suspect]
     Indication: DRUG USE FOR UNKNOWN INDICATION
  6. CELECOXIB [Suspect]
     Indication: DRUG USE FOR UNKNOWN INDICATION
  7. KETOROLAC TROMETHAMINE [Suspect]
     Indication: DRUG USE FOR UNKNOWN INDICATION

REACTIONS (14)
  - Intentional overdose [None]
  - Completed suicide [None]
  - Coma [None]
  - Hypotension [None]
  - Metabolic acidosis [None]
  - Respiratory depression [None]
  - Visceral congestion [None]
  - Brain oedema [None]
  - Myocardial oedema [None]
  - Cardiomyopathy [None]
  - Pulmonary oedema [None]
  - Pulmonary congestion [None]
  - Hepatic congestion [None]
  - Renal venous congestion [None]
